FAERS Safety Report 6124149-0 (Version None)
Quarter: 2009Q1

REPORT INFORMATION
  Report Type: 
  Country: None (occurrence: None)
  Receive Date: 20090317
  Receipt Date: 20090304
  Transmission Date: 20090719
  Serious: Yes (Hospitalization, Other)
  Sender: FDA-Public Use
  Company Number: 232469K09USA

PATIENT
  Age: 38 Year
  Sex: Female

DRUGS (4)
  1. REBIF [Suspect]
     Indication: MULTIPLE SCLEROSIS
     Dosage: 44 MCG, 3 IN 1 WEEKS, SUBCUTANEOUS
     Route: 058
     Dates: start: 20050429
  2. TYLENOL (COTYLENOL) [Concomitant]
  3. ADVIL [Concomitant]
  4. LEVOTHYROXINE (LEVOTHYROXINE /00068001/) [Concomitant]

REACTIONS (3)
  - INSULIN RESISTANCE [None]
  - RENAL FAILURE ACUTE [None]
  - URINARY TRACT INFECTION FUNGAL [None]
